FAERS Safety Report 5010617-1 (Version None)
Quarter: 2006Q2

REPORT INFORMATION
  Report Type: 
  Country: None (occurrence: None)
  Receive Date: 20060525
  Receipt Date: 20060518
  Transmission Date: 20061013
  Serious: Yes (Hospitalization)
  Sender: FDA-Public Use
  Company Number: US-JNJFOC-20060504241

PATIENT
  Sex: Female
  Weight: 50.8 kg

DRUGS (17)
  1. REMICADE [Suspect]
     Indication: RHEUMATOID ARTHRITIS
     Route: 042
  2. METHOTREXATE [Concomitant]
  3. COZAAR [Concomitant]
  4. LIPITOR [Concomitant]
  5. ESTRADIOL [Concomitant]
  6. FOLIC ACID [Concomitant]
  7. CALCIUM CITRATE [Concomitant]
  8. MULTI-VITAMIN [Concomitant]
  9. MULTI-VITAMIN [Concomitant]
  10. MULTI-VITAMIN [Concomitant]
  11. MULTI-VITAMIN [Concomitant]
  12. MULTI-VITAMIN [Concomitant]
  13. MULTI-VITAMIN [Concomitant]
  14. MULTI-VITAMIN [Concomitant]
  15. MULTI-VITAMIN [Concomitant]
  16. COQ [Concomitant]
  17. ACTONEL [Concomitant]

REACTIONS (1)
  - CARDIAC DISORDER [None]
